FAERS Safety Report 12615257 (Version 1)
Quarter: 2016Q3

REPORT INFORMATION
  Report Type: Spontaneous
  Country: US (occurrence: US)
  Receive Date: 20160802
  Receipt Date: 20160802
  Transmission Date: 20161109
  Serious: Yes (Other)
  Sender: FDA-Public Use
  Company Number: US-BAYER-2016-146030

PATIENT
  Age: 36 Year
  Sex: Female

DRUGS (1)
  1. MIRENA [Suspect]
     Active Substance: LEVONORGESTREL
     Indication: CONTRACEPTION
     Dosage: 20 MCG/24HR, CONT
     Route: 015
     Dates: start: 201607

REACTIONS (7)
  - Muscular weakness [None]
  - Fatigue [None]
  - Feeling abnormal [None]
  - Device issue [None]
  - Post procedural haemorrhage [Not Recovered/Not Resolved]
  - Nausea [None]
  - Myalgia [None]

NARRATIVE: CASE EVENT DATE: 2016
